FAERS Safety Report 9466374 (Version 10)
Quarter: 2015Q2

REPORT INFORMATION
  Report Type: Spontaneous
  Country: US (occurrence: US)
  Receive Date: 20130820
  Receipt Date: 20150626
  Transmission Date: 20150821
  Serious: Yes (Disabling)
  Sender: FDA-Public Use
  Company Number: US-MERCK-1308USA008297

PATIENT
  Sex: Male
  Weight: 95.24 kg

DRUGS (3)
  1. PROPECIA [Suspect]
     Active Substance: FINASTERIDE
     Indication: ANDROGENETIC ALOPECIA
     Dosage: 1 MG, UNK
     Route: 048
     Dates: start: 1998, end: 201306
  2. FINASTERIDE. [Suspect]
     Active Substance: FINASTERIDE
     Indication: ANDROGENETIC ALOPECIA
     Dosage: 1/4 OF 5 MG TABLET
     Route: 048
     Dates: start: 201202, end: 20130310
  3. FINASTERIDE. [Suspect]
     Active Substance: FINASTERIDE
     Indication: ANDROGENETIC ALOPECIA
     Dosage: 1 MG, UNK
     Route: 048
     Dates: start: 1998, end: 201306

REACTIONS (33)
  - Joint injury [Unknown]
  - Penis disorder [Unknown]
  - Spinal osteoarthritis [Unknown]
  - Weight decreased [Unknown]
  - Sleep disorder [Unknown]
  - Neck injury [Unknown]
  - Prostatic pain [Unknown]
  - Iron deficiency [Unknown]
  - Frustration [Unknown]
  - Pelvic pain [Unknown]
  - Victim of spousal abuse [Unknown]
  - Erectile dysfunction [Unknown]
  - Sexual dysfunction [Unknown]
  - Insomnia [Not Recovered/Not Resolved]
  - Proctalgia [Recovering/Resolving]
  - Penile pain [Recovering/Resolving]
  - Major depression [Not Recovered/Not Resolved]
  - Semen volume decreased [Unknown]
  - Loss of libido [Not Recovered/Not Resolved]
  - Libido decreased [Unknown]
  - Anxiety [Not Recovered/Not Resolved]
  - Hypertension [Unknown]
  - Hyperlipidaemia [Unknown]
  - Road traffic accident [Unknown]
  - Wrong technique in drug usage process [Unknown]
  - Epistaxis [Unknown]
  - Premature ejaculation [Unknown]
  - Narcissistic personality disorder [Unknown]
  - Testicular pain [Unknown]
  - Cognitive disorder [Not Recovered/Not Resolved]
  - Drug administration error [Unknown]
  - Male genital atrophy [Unknown]
  - Obsessive-compulsive personality disorder [Unknown]

NARRATIVE: CASE EVENT DATE: 1998
